FAERS Safety Report 7657167-1 (Version None)
Quarter: 2011Q3

REPORT INFORMATION
  Report Type: 
  Country: None (occurrence: None)
  Receive Date: 20110804
  Receipt Date: 20100106
  Transmission Date: 20111222
  Serious: Yes (Death, Hospitalization, Other)
  Sender: FDA-Public Use
  Company Number: PHHY2010TW50340

PATIENT
  Sex: Male

DRUGS (1)
  1. GLEEVEC [Suspect]
     Indication: CHRONIC MYELOID LEUKAEMIA
     Dosage: 400 MG, UNK
     Route: 048

REACTIONS (8)
  - NEOPLASM MALIGNANT [None]
  - ANAEMIA [None]
  - PLEURAL EFFUSION [None]
  - DIZZINESS [None]
  - CARDIAC NEOPLASM UNSPECIFIED [None]
  - RESPIRATORY FAILURE [None]
  - SKIN FRAGILITY [None]
  - OEDEMA [None]
